FAERS Safety Report 19473946 (Version 2)
Quarter: 2021Q3

REPORT INFORMATION
  Report Type: Spontaneous
  Country: US (occurrence: US)
  Receive Date: 20210629
  Receipt Date: 20210818
  Transmission Date: 20211014
  Serious: Yes (Hospitalization, Other)
  Sender: FDA-Public Use
  Company Number: US-PFIZER INC-2021754573

PATIENT
  Age: 65 Year
  Sex: Male

DRUGS (1)
  1. TIKOSYN [Suspect]
     Active Substance: DOFETILIDE
     Dosage: UNK

REACTIONS (5)
  - Pulmonary thrombosis [Unknown]
  - Coronary artery thrombosis [Unknown]
  - Thrombosis [Unknown]
  - Tachycardia [Unknown]
  - Cardiac disorder [Unknown]
